FAERS Safety Report 7826810-6 (Version None)
Quarter: 2011Q4

REPORT INFORMATION
  Report Type: 
  Country: None (occurrence: None)
  Receive Date: 20111020
  Receipt Date: 20111006
  Transmission Date: 20120403
  Serious: Yes (Other)
  Sender: FDA-Public Use
  Company Number: NL-MYLANLABS-2011S1020893

PATIENT
  Age: 73 Year
  Sex: Female
  Weight: 59 kg

DRUGS (2)
  1. PRAVASTATIN [Suspect]
     Indication: HYPERTENSION
     Dosage: 1 TABLET PER DAG
     Route: 048
     Dates: start: 20110601, end: 20110925
  2. EZETIMIBE [Concomitant]
     Indication: PRODUCT USED FOR UNKNOWN INDICATION
     Dosage: 1 TABLET PER DAG
     Route: 048
     Dates: start: 20110404

REACTIONS (2)
  - MYALGIA [None]
  - TENDON RUPTURE [None]
